FAERS Safety Report 8250207-0 (Version None)
Quarter: 2012Q2

REPORT INFORMATION
  Report Type: 
  Country: None (occurrence: None)
  Receive Date: 20120402
  Receipt Date: 20120327
  Transmission Date: 20120825
  Serious: Yes (Life-Threatening, Other)
  Sender: FDA-Public Use
  Company Number: PHHY2012BE026278

PATIENT
  Sex: Female

DRUGS (2)
  1. AZITHROMYCIN [Suspect]
     Indication: COUGH
     Dosage: 500 MG, QD
     Dates: start: 20111202, end: 20111204
  2. GLUCOPHAGE [Concomitant]
     Indication: TYPE 2 DIABETES MELLITUS

REACTIONS (4)
  - FEELING ABNORMAL [None]
  - DIARRHOEA [None]
  - VOMITING [None]
  - NAUSEA [None]
